FAERS Safety Report 25772390 (Version 1)
Quarter: 2025Q3

REPORT INFORMATION
  Report Type: Spontaneous
  Country: JP (occurrence: JP)
  Receive Date: 20250908
  Receipt Date: 20250908
  Transmission Date: 20251021
  Serious: Yes (Hospitalization)
  Sender: MYLAN
  Company Number: JP-MYLANLABS-2025M1075605

PATIENT
  Age: 20 Year
  Sex: Male

DRUGS (2)
  1. ANHIBA [Suspect]
     Active Substance: ACETAMINOPHEN
     Indication: Abdominal pain upper
  2. PENTAZOCINE [Suspect]
     Active Substance: PENTAZOCINE
     Indication: Abdominal pain upper

REACTIONS (1)
  - Drug ineffective [Unknown]
